FAERS Safety Report 5569558-3 (Version None)
Quarter: 2007Q4

REPORT INFORMATION
  Report Type: 
  Country: None (occurrence: None)
  Receive Date: 20071220
  Receipt Date: 20071207
  Transmission Date: 20080405
  Serious: Yes (Hospitalization)
  Sender: FDA-Public Use
  Company Number: IT-RANBAXY-2007RR-12018

PATIENT

DRUGS (1)
  1. AMOXICILLIN [Suspect]

REACTIONS (2)
  - DYSPNOEA [None]
  - LARYNGOSPASM [None]
